FAERS Safety Report 5491707-6 (Version None)
Quarter: 2007Q4

REPORT INFORMATION
  Report Type: 
  Country: None (occurrence: None)
  Receive Date: 20071018
  Receipt Date: 20071018
  Transmission Date: 20080405
  Serious: Yes (Death)
  Sender: FDA-Public Use
  Company Number: None

PATIENT
  Age: 32 Year
  Sex: Female
  Weight: 60 kg

DRUGS (2)
  1. ACETAMINOPHEN [Suspect]
     Indication: ABDOMINAL PAIN
     Dosage: 1 GM PO Q6?
     Route: 048
  2. ACETAMINOPHEN [Suspect]
     Indication: PYREXIA
     Dosage: 1 GM PO Q6?
     Route: 048

REACTIONS (4)
  - ALANINE AMINOTRANSFERASE INCREASED [None]
  - ASPARTATE AMINOTRANSFERASE INCREASED [None]
  - BRAIN HERNIATION [None]
  - BRAIN OEDEMA [None]
